FAERS Safety Report 8932559 (Version 1)
Quarter: 2012Q4

REPORT INFORMATION
  Report Type: Spontaneous
  Country: US (occurrence: None)
  Receive Date: 20121121
  Receipt Date: 20121121
  Transmission Date: 20130627
  Serious: No
  Sender: FDA-Public Use
  Company Number: None

PATIENT
  Age: 82 Year
  Sex: Male
  Weight: 59.88 kg

DRUGS (1)
  1. METRONIDAZOLE [Suspect]
     Dosage: 500 mg 1/day
     Dates: start: 20121016, end: 20121020

REACTIONS (2)
  - Parosmia [None]
  - Suicidal ideation [None]
